FAERS Safety Report 21588899 (Version 3)
Quarter: 2022Q4

REPORT INFORMATION
  Report Type: Spontaneous
  Country: US (occurrence: US)
  Receive Date: 20221114
  Receipt Date: 20221214
  Transmission Date: 20230112
  Serious: Yes (Other)
  Sender: FDA-Public Use
  Company Number: US-PFIZER INC-2020235361

PATIENT
  Age: 58 Year
  Sex: Female

DRUGS (4)
  1. ESTRING [Suspect]
     Active Substance: ESTRADIOL
     Indication: Bladder discomfort
     Dosage: UNK
  2. ESTRING [Suspect]
     Active Substance: ESTRADIOL
     Indication: Incontinence
  3. ESTRING [Suspect]
     Active Substance: ESTRADIOL
     Indication: Food allergy
  4. ESTRING [Suspect]
     Active Substance: ESTRADIOL
     Indication: Abdominal discomfort

REACTIONS (4)
  - Haemorrhage [Unknown]
  - Drug hypersensitivity [Unknown]
  - Drug effective for unapproved indication [Unknown]
  - Off label use [Unknown]
